FAERS Safety Report 9639708 (Version 1)
Quarter: 2013Q4

REPORT INFORMATION
  Report Type: Spontaneous
  Country: US (occurrence: None)
  Receive Date: 20131021
  Receipt Date: 20131021
  Transmission Date: 20140711
  Serious: Yes (Hospitalization)
  Sender: FDA-Public Use
  Company Number: None

PATIENT
  Age: 85 Year
  Sex: Female
  Weight: 145 kg

DRUGS (11)
  1. MULTAQ [Suspect]
     Indication: ARRHYTHMIA
     Dosage: 1 TABLET 2 TIMES A DAY AT MORNING AND EVENING 2X DAILY BREAKFAST AND DINNER BY MOUTH
     Route: 048
     Dates: start: 2013, end: 201308
  2. MULTAQ [Suspect]
     Indication: ATRIAL FIBRILLATION
     Dosage: 1 TABLET 2 TIMES A DAY AT MORNING AND EVENING 2X DAILY BREAKFAST AND DINNER BY MOUTH
     Route: 048
     Dates: start: 2013, end: 201308
  3. DIGOXIN [Concomitant]
  4. AMIODARONE [Concomitant]
  5. METROPROLOL [Concomitant]
  6. HYDROCHLOROTHIAZIDE [Concomitant]
  7. VYTORIN [Concomitant]
  8. IRBESARTAN [Concomitant]
  9. WARFARIN [Concomitant]
  10. XYZAL [Concomitant]
  11. TYLENOL [Concomitant]

REACTIONS (7)
  - Fatigue [None]
  - Diarrhoea [None]
  - Decreased appetite [None]
  - Weight decreased [None]
  - Nausea [None]
  - Dyspepsia [None]
  - Speech disorder [None]
